FAERS Safety Report 9333135 (Version 2)
Quarter: 2013Q2

REPORT INFORMATION
  Report Type: Spontaneous
  Country: JP (occurrence: JP)
  Receive Date: 20130606
  Receipt Date: 20130610
  Transmission Date: 20140414
  Serious: Yes (Other)
  Sender: FDA-Public Use
  Company Number: JP-TEVA-408450ISR

PATIENT
  Age: 52 Year
  Sex: Female
  Weight: 55.3 kg

DRUGS (2)
  1. CISPLATIN [Suspect]
     Indication: OESOPHAGEAL CARCINOMA
     Dosage: ON DAY 1
     Route: 065
  2. FLUOROURACIL [Suspect]
     Indication: OESOPHAGEAL CARCINOMA
     Route: 042

REACTIONS (7)
  - Loss of consciousness [Unknown]
  - Encephalopathy [Recovering/Resolving]
  - Hyponatraemia [Recovering/Resolving]
  - Renal salt-wasting syndrome [Recovering/Resolving]
  - Nausea [Unknown]
  - Speech disorder [Recovering/Resolving]
  - Hypoaesthesia [Recovered/Resolved]
